FAERS Safety Report 21812674 (Version 1)
Quarter: 2022Q4

REPORT INFORMATION
  Report Type: Spontaneous
  Country: US (occurrence: None)
  Receive Date: 20221231
  Receipt Date: 20221231
  Transmission Date: 20230113
  Serious: No
  Sender: FDA-Public Use
  Company Number: None

PATIENT
  Age: 37 Year
  Sex: Female
  Weight: 51.75 kg

DRUGS (1)
  1. DAPSONE [Suspect]
     Active Substance: DAPSONE
     Indication: Acne
     Dosage: OTHER QUANTITY : 1 PUMP;?FREQUENCY : TWICE A DAY;?
     Route: 061
     Dates: start: 20221001, end: 20221231

REACTIONS (4)
  - Skin irritation [None]
  - Rash [None]
  - Product substitution issue [None]
  - Product physical issue [None]

NARRATIVE: CASE EVENT DATE: 20221001
